FAERS Safety Report 6086685-5 (Version None)
Quarter: 2009Q1

REPORT INFORMATION
  Report Type: 
  Country: None (occurrence: None)
  Receive Date: 20090217
  Receipt Date: 20090202
  Transmission Date: 20090719
  Serious: Yes (Death)
  Sender: FDA-Public Use
  Company Number: CHPA2009US01649

PATIENT
  Age: 57 Year
  Sex: Male

DRUGS (7)
  1. ASPIRIN [Suspect]
     Dosage: ORAL
     Route: 048
  2. BACLOFEN [Suspect]
     Dosage: ORAL
     Route: 048
  3. OXYCODONE AND ASPIRIN [Suspect]
     Dosage: ORAL
     Route: 048
  4. DIAZEPAM [Suspect]
     Dosage: ORAL
     Route: 048
  5. GABAPENTIN [Suspect]
     Dosage: ORAL
     Route: 048
  6. LAXATIVES (NO INGREDIENTS/ SUBSTANCES) [Suspect]
     Dosage: ORAL
     Route: 048
  7. OXYBUTYNIN CHLORIDE [Suspect]
     Dosage: ORAL
     Route: 048

REACTIONS (1)
  - COMPLETED SUICIDE [None]
